FAERS Safety Report 8524345-9 (Version None)
Quarter: 2012Q3

REPORT INFORMATION
  Report Type: 
  Country: None (occurrence: None)
  Receive Date: 20120720
  Receipt Date: 20120710
  Transmission Date: 20120928
  Serious: Yes (Hospitalization)
  Sender: FDA-Public Use
  Company Number: US-PFIZER INC-2012146562

PATIENT
  Sex: Female
  Weight: 55.78 kg

DRUGS (13)
  1. VITAMIN E [Concomitant]
     Indication: ROUTINE HEALTH MAINTENANCE
     Dosage: UNK
     Route: 048
     Dates: start: 19880101
  2. THERAGRAN-M [Concomitant]
     Indication: ROUTINE HEALTH MAINTENANCE
     Dosage: 1 PILL, 1X/DAY
     Route: 048
     Dates: start: 19880101
  3. VITAMIN D [Concomitant]
     Indication: ROUTINE HEALTH MAINTENANCE
     Dosage: UNK
     Route: 048
     Dates: start: 19880101
  4. PAMIDRONATE DISODIUM [Concomitant]
     Indication: METASTASES TO BONE
     Dosage: 90 MG, EVERY 4 WEEKS
     Route: 042
     Dates: start: 20110225
  5. PF-00299804 [Suspect]
     Indication: NON-SMALL CELL LUNG CANCER
     Dosage: 45 MG, COHORTS I AND II DAILY CONTINOUS
     Route: 065
     Dates: start: 20120529, end: 20120618
  6. FOLIC ACID [Concomitant]
     Indication: CHEMOTHERAPY CYTOKINE PROPHYLAXIS
     Dosage: 1 MG, 1X/DAY
     Route: 048
     Dates: start: 20111201
  7. ASCORBIC ACID [Concomitant]
     Indication: ROUTINE HEALTH MAINTENANCE
     Dosage: UNK
     Route: 048
     Dates: start: 19880101
  8. DOXYCYCLINE [Suspect]
     Indication: NON-SMALL CELL LUNG CANCER
     Dosage: 100 MG, 2X/DAY
     Route: 048
     Dates: start: 20120529, end: 20120620
  9. ALEVE [Suspect]
     Indication: PAIN
     Dosage: 220 MG, 2X/DAY
     Route: 048
     Dates: start: 20120612, end: 20120613
  10. VITAMIN B-12 [Concomitant]
     Indication: ROUTINE HEALTH MAINTENANCE
     Dosage: UNK
     Route: 048
     Dates: start: 19880101
  11. MOTRIN [Concomitant]
     Indication: PAIN
     Dosage: 800 MG, 2X/DAY
     Route: 048
     Dates: start: 20111219, end: 20120612
  12. MS CONTIN [Concomitant]
     Indication: PAIN
     Dosage: 15 MG, 2X/DAY
     Route: 048
     Dates: start: 20120612, end: 20120612
  13. ZOFRAN [Concomitant]
     Indication: NAUSEA
     Dosage: 4 MG, Q6H
     Route: 030
     Dates: start: 20120617, end: 20120619

REACTIONS (1)
  - DEHYDRATION [None]
